FAERS Safety Report 20227819 (Version 2)
Quarter: 2022Q4

REPORT INFORMATION
  Report Type: Spontaneous
  Country: CH (occurrence: CH)
  Receive Date: 20211224
  Receipt Date: 20221027
  Transmission Date: 20230113
  Serious: Yes (Death, Other)
  Sender: FDA-Public Use
  Company Number: CH-PFIZER INC-202101775317

PATIENT
  Age: 6 Year
  Sex: Male

DRUGS (23)
  1. METHYLPREDNISOLONE SODIUM SUCCINATE [Suspect]
     Active Substance: METHYLPREDNISOLONE SODIUM SUCCINATE
     Dosage: 30 MG/KG, DAILY
     Route: 042
  2. AMOXICILLIN [Suspect]
     Active Substance: AMOXICILLIN
     Indication: Evidence based treatment
     Dosage: UNK
     Route: 042
  3. AMOXICILLIN [Suspect]
     Active Substance: AMOXICILLIN
     Indication: Acute respiratory distress syndrome
  4. AMOXICILLIN [Suspect]
     Active Substance: AMOXICILLIN
     Indication: Pulmonary oedema
  5. PIPERACILLIN SODIUM\TAZOBACTAM SODIUM [Suspect]
     Active Substance: PIPERACILLIN SODIUM\TAZOBACTAM SODIUM
     Indication: Evidence based treatment
     Dosage: UNK
     Route: 042
  6. PIPERACILLIN SODIUM\TAZOBACTAM SODIUM [Suspect]
     Active Substance: PIPERACILLIN SODIUM\TAZOBACTAM SODIUM
     Indication: Acute respiratory distress syndrome
  7. PIPERACILLIN SODIUM\TAZOBACTAM SODIUM [Suspect]
     Active Substance: PIPERACILLIN SODIUM\TAZOBACTAM SODIUM
     Indication: Multisystem inflammatory syndrome in children
  8. GANCICLOVIR [Suspect]
     Active Substance: GANCICLOVIR
     Indication: Acute respiratory distress syndrome
     Dosage: UNK
     Route: 042
  9. GANCICLOVIR [Suspect]
     Active Substance: GANCICLOVIR
     Indication: Multisystem inflammatory syndrome in children
  10. GANCICLOVIR [Suspect]
     Active Substance: GANCICLOVIR
     Indication: Haemophagocytic lymphohistiocytosis
  11. CASPOFUNGIN [Suspect]
     Active Substance: CASPOFUNGIN
     Indication: Haemophagocytic lymphohistiocytosis
     Dosage: UNK
  12. HUMAN IMMUNOGLOBULIN G [Suspect]
     Active Substance: HUMAN IMMUNOGLOBULIN G
     Indication: Evidence based treatment
     Dosage: 1 G/KG
     Route: 042
  13. HUMAN IMMUNOGLOBULIN G [Suspect]
     Active Substance: HUMAN IMMUNOGLOBULIN G
     Indication: Acute respiratory distress syndrome
     Dosage: 2 G/KG
     Route: 042
  14. HUMAN IMMUNOGLOBULIN G [Suspect]
     Active Substance: HUMAN IMMUNOGLOBULIN G
     Indication: Pulmonary oedema
  15. HUMAN IMMUNOGLOBULIN G [Suspect]
     Active Substance: HUMAN IMMUNOGLOBULIN G
     Indication: Multisystem inflammatory syndrome in children
  16. ANAKINRA [Suspect]
     Active Substance: ANAKINRA
     Indication: Acute respiratory distress syndrome
     Dosage: 4 MG/KG, 2X/DAY
     Route: 058
  17. ANAKINRA [Suspect]
     Active Substance: ANAKINRA
     Indication: Pulmonary oedema
     Dosage: 3 MG/KG, 3X/DAY
     Route: 058
  18. ANAKINRA [Suspect]
     Active Substance: ANAKINRA
     Indication: Multisystem inflammatory syndrome in children
  19. FUROSEMIDE [Suspect]
     Active Substance: FUROSEMIDE
     Indication: Haemophagocytic lymphohistiocytosis
     Dosage: UNK
     Route: 042
  20. RITUXIMAB [Suspect]
     Active Substance: RITUXIMAB
     Indication: Haemophagocytic lymphohistiocytosis
     Dosage: UNK
     Route: 042
  21. CYCLOSPORINE [Suspect]
     Active Substance: CYCLOSPORINE
     Indication: Haemophagocytic lymphohistiocytosis
     Dosage: UNK
     Route: 042
  22. GRAFALON [Suspect]
     Active Substance: LAPINE T-LYMPHOCYTE IMMUNE GLOBULIN
     Indication: Haemophagocytic lymphohistiocytosis
     Dosage: UNK
     Route: 042
  23. ALBUMIN HUMAN [Suspect]
     Active Substance: ALBUMIN HUMAN
     Indication: Haemophagocytic lymphohistiocytosis
     Dosage: UNK

REACTIONS (1)
  - Drug ineffective [Fatal]
